FAERS Safety Report 13780863 (Version 1)
Quarter: 2017Q3

REPORT INFORMATION
  Report Type: Spontaneous
  Country: US (occurrence: US)
  Receive Date: 20170724
  Receipt Date: 20170724
  Transmission Date: 20171127
  Serious: No
  Sender: FDA-Public Use
  Company Number: US-PFIZER INC-2017316143

PATIENT
  Age: 59 Year
  Sex: Female

DRUGS (8)
  1. LISINOPRIL. [Suspect]
     Active Substance: LISINOPRIL
     Dosage: UNK
  2. BACTRIM [Suspect]
     Active Substance: SULFAMETHOXAZOLE\TRIMETHOPRIM
     Dosage: UNK
  3. PAXIL [Suspect]
     Active Substance: PAROXETINE HYDROCHLORIDE
     Dosage: UNK
  4. FLAGYL [Suspect]
     Active Substance: METRONIDAZOLE\METRONIDAZOLE HYDROCHLORIDE
     Dosage: UNK
  5. METHOTREXATE SODIUM. [Suspect]
     Active Substance: METHOTREXATE SODIUM
     Dosage: UNK
  6. MOTRIN [Suspect]
     Active Substance: IBUPROFEN
     Dosage: UNK
  7. NORCO [Suspect]
     Active Substance: ACETAMINOPHEN\HYDROCODONE BITARTRATE
     Dosage: UNK
  8. REMICADE [Suspect]
     Active Substance: INFLIXIMAB
     Dosage: UNK

REACTIONS (1)
  - Drug hypersensitivity [Unknown]
